FAERS Safety Report 9122735 (Version 1)
Quarter: 2013Q1

REPORT INFORMATION
  Report Type: Spontaneous
  Country: US (occurrence: US)
  Receive Date: 20130115
  Receipt Date: 20130115
  Transmission Date: 20140127
  Serious: Yes (Other)
  Sender: FDA-Public Use
  Company Number: US-009507513-1301USA003568

PATIENT
  Age: 43 Year
  Sex: Female

DRUGS (1)
  1. SINGULAIR [Suspect]
     Indication: ALLERGIC SINUSITIS

REACTIONS (1)
  - Migraine with aura [Unknown]
